FAERS Safety Report 13357438 (Version 1)
Quarter: 2017Q1

REPORT INFORMATION
  Report Type: Report from Study
  Country: None (occurrence: US)
  Receive Date: 20170322
  Receipt Date: 20170322
  Transmission Date: 20170429
  Serious: Yes (Other)
  Sender: FDA-Public Use
  Company Number: US-ABBVIE-17K-163-1910083-00

PATIENT
  Sex: Male

DRUGS (1)
  1. HUMIRA [Suspect]
     Active Substance: ADALIMUMAB
     Indication: CROHN^S DISEASE
     Route: 058

REACTIONS (6)
  - Wound [Unknown]
  - Crohn^s disease [Unknown]
  - Abscess intestinal [Unknown]
  - Gastrointestinal pain [Unknown]
  - Gastrointestinal fistula [Unknown]
  - Surgical failure [Unknown]
